FAERS Safety Report 12206692 (Version 2)
Quarter: 2016Q2

REPORT INFORMATION
  Report Type: Report from Study
  Country: JP (occurrence: JP)
  Receive Date: 20160324
  Receipt Date: 20160511
  Transmission Date: 20160815
  Serious: Yes (Hospitalization, Disabling, Other)
  Sender: FDA-Public Use
  Company Number: JP-AMGEN-JPNCT2016036981

PATIENT
  Age: 70 Year
  Sex: Female
  Weight: 49 kg

DRUGS (22)
  1. DARBEPOETIN ALFA [Suspect]
     Active Substance: DARBEPOETIN ALFA
     Dosage: 90 MUG, Q4WK
     Route: 042
     Dates: start: 20150413
  2. ZYLORIC [Suspect]
     Active Substance: ALLOPURINOL
     Indication: HYPERURICAEMIA
     Dosage: 50 MG, QD
     Route: 048
     Dates: start: 20050724
  3. DEPAS [Suspect]
     Active Substance: ETIZOLAM
     Indication: ANXIETY
     Dosage: 0.5 MG, PRN
     Route: 048
     Dates: start: 20101129
  4. SHAKUYAKUKANZOTO [Suspect]
     Active Substance: HERBALS
     Indication: MUSCLE SPASMS
     Dosage: 2.5 G, QD
     Route: 048
     Dates: start: 20131028
  5. FERROMIA [Suspect]
     Active Substance: FERROUS CITRATE
     Indication: IRON DEFICIENCY ANAEMIA
     Dosage: 100 MG, QD
     Route: 048
     Dates: start: 20150608
  6. LOXONIN [Suspect]
     Active Substance: LOXOPROFEN SODIUM
     Indication: BACK PAIN
     Dosage: UNK, QD
     Route: 061
     Dates: start: 20131028
  7. PYRIDOXAL [Suspect]
     Active Substance: PYRIDOXAL
     Indication: VITAMIN SUPPLEMENTATION
     Dosage: 20 MG, TID
     Route: 048
     Dates: start: 20160411
  8. DARBEPOETIN ALFA [Suspect]
     Active Substance: DARBEPOETIN ALFA
     Dosage: 120 MUG, Q4WK
     Route: 042
     Dates: start: 20150803
  9. ISCOTIN [Suspect]
     Active Substance: ISONIAZID
     Indication: TUBERCULOSIS
     Dosage: 200 MG, QD
     Route: 048
     Dates: start: 20160411
  10. NORVASC [Suspect]
     Active Substance: AMLODIPINE BESYLATE
     Indication: HYPERTENSION
     Dosage: 2.5 MG, QD
     Route: 048
     Dates: start: 20050725
  11. URSO [Suspect]
     Active Substance: URSODIOL
     Indication: CHRONIC HEPATITIS C
     Dosage: 300 MG, BID
     Route: 048
     Dates: start: 20050725
  12. DARBEPOETIN ALFA [Suspect]
     Active Substance: DARBEPOETIN ALFA
     Dosage: 120 MUG, Q2WK
     Route: 042
     Dates: start: 20160315
  13. DARBEPOETIN ALFA [Suspect]
     Active Substance: DARBEPOETIN ALFA
     Dosage: 140 MUG, Q2WK
     Route: 065
     Dates: start: 20160410
  14. REZALTAS [Suspect]
     Active Substance: AZELNIDIPINE\OLMESARTAN MEDOXOMIL
     Indication: HYPERTENSION
     Dosage: 1 DF, QD
     Route: 048
     Dates: start: 20110328
  15. LASIX [Suspect]
     Active Substance: FUROSEMIDE
     Indication: OEDEMA
     Dosage: 20 MG, QD
     Route: 048
     Dates: start: 20160215
  16. LOXONIN [Suspect]
     Active Substance: LOXOPROFEN SODIUM
     Indication: BACK PAIN
  17. PARIET [Suspect]
     Active Substance: RABEPRAZOLE SODIUM
     Indication: GASTRIC ULCER
     Dosage: 10 MG, QD
     Route: 048
     Dates: start: 20150129
  18. DARBEPOETIN ALFA [Suspect]
     Active Substance: DARBEPOETIN ALFA
     Indication: CHRONIC KIDNEY DISEASE
     Dosage: 60 MUG, QD
     Route: 042
     Dates: start: 20150316
  19. CARDENALIN [Suspect]
     Active Substance: DOXAZOSIN MESYLATE
     Indication: HYPERTENSION
     Dosage: 2 MG, QD
     Route: 048
     Dates: start: 20150803
  20. DARBEPOETIN ALFA [Suspect]
     Active Substance: DARBEPOETIN ALFA
     Dosage: 180 MUG, Q4WK
     Route: 042
     Dates: start: 20150928
  21. NATRIX [Suspect]
     Active Substance: INDAPAMIDE
     Indication: HYPERTENSION
     Dosage: 1 MG, QD
     Route: 048
     Dates: start: 20151006
  22. ROCALTROL [Suspect]
     Active Substance: CALCITRIOL
     Indication: HYPERPARATHYROIDISM SECONDARY
     Dosage: 0.25 MUG, QD
     Route: 048
     Dates: start: 20150706

REACTIONS (5)
  - Anaemia [Not Recovered/Not Resolved]
  - Pleural effusion [Not Recovered/Not Resolved]
  - Gastric antral vascular ectasia [Not Recovered/Not Resolved]
  - Peritoneal dialysis [Recovered/Resolved with Sequelae]
  - Ascites [Not Recovered/Not Resolved]

NARRATIVE: CASE EVENT DATE: 20150831
